FAERS Safety Report 11895974 (Version 1)
Quarter: 2016Q1

REPORT INFORMATION
  Report Type: Spontaneous
  Country: GB (occurrence: GB)
  Receive Date: 20160107
  Receipt Date: 20160107
  Transmission Date: 20160526
  Serious: Yes (Disabling)
  Sender: FDA-Public Use
  Company Number: GB-ASTRAZENECA-2016SE01565

PATIENT
  Age: 52 Year
  Sex: Male

DRUGS (10)
  1. PANTOPRAZOLE [Concomitant]
     Active Substance: PANTOPRAZOLE SODIUM
  2. ZOPICLONE [Concomitant]
     Active Substance: ZOPICLONE
  3. ATORVASTATIN [Concomitant]
     Active Substance: ATORVASTATIN
  4. METOPROLOL. [Concomitant]
     Active Substance: METOPROLOL
  5. TICAGRELOR [Suspect]
     Active Substance: TICAGRELOR
     Indication: ACUTE MYOCARDIAL INFARCTION
     Route: 048
     Dates: start: 20150301, end: 20150902
  6. RAMIPRIL. [Concomitant]
     Active Substance: RAMIPRIL
  7. TRAMADOL. [Concomitant]
     Active Substance: TRAMADOL
  8. MIRTAZAPINE. [Concomitant]
     Active Substance: MIRTAZAPINE
  9. ASPIRIN. [Concomitant]
     Active Substance: ASPIRIN
  10. RANITIDINE [Concomitant]
     Active Substance: RANITIDINE\RANITIDINE HYDROCHLORIDE

REACTIONS (7)
  - Chest discomfort [Recovering/Resolving]
  - Asthenia [Recovering/Resolving]
  - Dyspnoea [Recovering/Resolving]
  - Headache [Recovering/Resolving]
  - Nausea [Recovering/Resolving]
  - Haematochezia [Recovering/Resolving]
  - Confusional state [Recovering/Resolving]

NARRATIVE: CASE EVENT DATE: 201503
